FAERS Safety Report 12882898 (Version 2)
Quarter: 2017Q1

REPORT INFORMATION
  Report Type: Spontaneous
  Country: US (occurrence: US)
  Receive Date: 20161025
  Receipt Date: 20170118
  Transmission Date: 20170428
  Serious: Yes (Other)
  Sender: FDA-Public Use
  Company Number: US-UCBSA-2016009235

PATIENT
  Age: 70 Year
  Sex: Female
  Weight: 135 kg

DRUGS (1)
  1. CIMZIA [Suspect]
     Active Substance: CERTOLIZUMAB PEGOL
     Indication: RHEUMATOID ARTHRITIS
     Dosage: 400 MG, MONTHLY (QM)
     Route: 058
     Dates: start: 201503, end: 201610

REACTIONS (7)
  - Abdominal discomfort [Recovering/Resolving]
  - Tremor [Unknown]
  - Musculoskeletal pain [Unknown]
  - Diarrhoea [Unknown]
  - Nausea [Recovering/Resolving]
  - Pain in extremity [Unknown]
  - Colitis [Recovered/Resolved]

NARRATIVE: CASE EVENT DATE: 20160307
